FAERS Safety Report 8818475 (Version 1)
Quarter: 2012Q4

REPORT INFORMATION
  Report Type: 
  Country: US (occurrence: US)
  Receive Date: 20121001
  Receipt Date: 20121001
  Transmission Date: 20130627
  Serious: Yes (Hospitalization, Other)
  Sender: FDA-Public Use
  Company Number: US-ELI_LILLY_AND_COMPANY-US201208004440

PATIENT
  Sex: Female

DRUGS (9)
  1. EVISTA [Suspect]
     Indication: OSTEOPOROSIS
     Dosage: 60 mg, qd
     Dates: start: 201205, end: 201207
  2. FORTEO [Suspect]
     Indication: OSTEOPOROSIS
     Dosage: 20 ug, qd
     Dates: start: 201207, end: 20120820
  3. FORTEO [Suspect]
     Dosage: 20 ug, qd
     Dates: start: 20120828
  4. MIACALCIN [Concomitant]
     Dosage: UNK
     Dates: end: 201207
  5. SYNTHROID [Concomitant]
     Indication: BASEDOW^S DISEASE
     Dosage: 75 ug, UNK
  6. PREMPRO [Concomitant]
  7. PREDNISONE [Concomitant]
     Dosage: 4 ug, UNK
  8. COLACE [Concomitant]
     Dosage: 100 mg, bid
  9. PROVELLE [Concomitant]
     Dosage: UNK, 3/W

REACTIONS (8)
  - Small intestinal obstruction [Unknown]
  - Injection site bruising [Unknown]
  - Drug ineffective [Unknown]
  - Dizziness [Unknown]
  - Vision blurred [Not Recovered/Not Resolved]
  - Malaise [Unknown]
  - Muscular weakness [Unknown]
  - Constipation [Not Recovered/Not Resolved]
